FAERS Safety Report 7199790-7 (Version None)
Quarter: 2010Q4

REPORT INFORMATION
  Report Type: 
  Country: None (occurrence: None)
  Receive Date: 20101228
  Receipt Date: 20101220
  Transmission Date: 20110411
  Serious: Yes (Hospitalization)
  Sender: FDA-Public Use
  Company Number: IT-ROCHE-749510

PATIENT
  Sex: Male
  Weight: 83 kg

DRUGS (5)
  1. BLINDED BEVACIZUMAB [Suspect]
     Indication: GLIOBLASTOMA
     Dosage: FORM: SOLUTION, LAST DOSE PRIOR TO SAE ON 18 NOV 2010, PATIENT EXCLUDED FORM THE STUDAY.
     Route: 042
     Dates: start: 20100408, end: 20101201
  2. TEMOZOLOMIDE [Suspect]
     Indication: GLIOBLASTOMA
     Dosage: LAST DOSE PRIOR TO SAE ON 8 NOV 2010. PATIENT EXCLUDED FORM THE PROTOCOL.
     Route: 048
     Dates: start: 20100408, end: 20101201
  3. TEMODAL [Concomitant]
     Dates: start: 20101202, end: 20101216
  4. ENALAPRIL MALEATE [Concomitant]
     Dates: start: 20100929, end: 20101216
  5. ENALAPRIL MALEATE [Concomitant]
     Dates: start: 20101217

REACTIONS (2)
  - CONFUSIONAL STATE [None]
  - CONVULSION [None]
